FAERS Safety Report 25259104 (Version 1)
Quarter: 2025Q2

REPORT INFORMATION
  Report Type: Spontaneous
  Country: US (occurrence: None)
  Receive Date: 20250429
  Receipt Date: 20250429
  Transmission Date: 20250716
  Serious: Yes (Life-Threatening, Hospitalization)
  Sender: FDA-CTU
  Company Number: None

PATIENT
  Age: 68 Year
  Sex: Female
  Weight: 63.05 kg

DRUGS (2)
  1. HUMALOG [Suspect]
     Active Substance: INSULIN LISPRO
  2. Tandem t:slim [Concomitant]

REACTIONS (5)
  - Blood glucose decreased [None]
  - Vomiting [None]
  - Diarrhoea [None]
  - Diabetic ketoacidosis [None]
  - Device information output issue [None]

NARRATIVE: CASE EVENT DATE: 20250423
